FAERS Safety Report 19651576 (Version 1)
Quarter: 2021Q3

REPORT INFORMATION
  Report Type: Spontaneous
  Country: US (occurrence: US)
  Receive Date: 20210731
  Receipt Date: 20210731
  Transmission Date: 20211014
  Serious: Yes (Hospitalization)
  Sender: FDA-Public Use
  Company Number: None

PATIENT
  Age: 85 Year
  Sex: Male
  Weight: 100.6 kg

DRUGS (2)
  1. MITOMYCIN C [Suspect]
     Active Substance: MITOMYCIN
     Dates: end: 20210511
  2. 5?FLUOROURACIL (5?FU) [Suspect]
     Active Substance: FLUOROURACIL
     Dates: end: 20210601

REACTIONS (13)
  - Urethral disorder [None]
  - Bladder spasm [None]
  - Dehydration [None]
  - Blood creatine increased [None]
  - Diarrhoea [None]
  - Discomfort [None]
  - Scrotal swelling [None]
  - Dyspnoea [None]
  - Hypoxia [None]
  - Oedema peripheral [None]
  - Renal tubular necrosis [None]
  - Penile discomfort [None]
  - Dysuria [None]

NARRATIVE: CASE EVENT DATE: 20210715
